FAERS Safety Report 7076270-0 (Version None)
Quarter: 2010Q4

REPORT INFORMATION
  Report Type: 
  Country: None (occurrence: None)
  Receive Date: 20101101
  Receipt Date: 20101022
  Transmission Date: 20110411
  Serious: Yes (Other)
  Sender: FDA-Public Use
  Company Number: LB-JNJFOC-20101004506

PATIENT
  Age: 39 Year
  Sex: Male

DRUGS (3)
  1. TAVANIC [Suspect]
     Indication: BRONCHITIS
     Route: 048
     Dates: start: 20100924, end: 20100927
  2. PARACETAMOL [Concomitant]
     Indication: PYREXIA
     Route: 065
  3. CHAMPIX NOS [Concomitant]
     Indication: SMOKING CESSATION THERAPY
     Route: 065

REACTIONS (1)
  - TOXIC EPIDERMAL NECROLYSIS [None]
